FAERS Safety Report 9185048 (Version 1)
Quarter: 2013Q1

REPORT INFORMATION
  Report Type: Spontaneous
  Country: US (occurrence: US)
  Receive Date: 20130325
  Receipt Date: 20130325
  Transmission Date: 20140127
  Serious: Yes (Other)
  Sender: FDA-Public Use
  Company Number: US-BAYER-2013-034339

PATIENT
  Age: 43 Year
  Sex: Female

DRUGS (1)
  1. MIRENA [Suspect]
     Indication: MENORRHAGIA
     Dosage: 20 MCG/24HR, CONT
     Route: 015
     Dates: start: 20100602, end: 20130228

REACTIONS (3)
  - Vaginal haemorrhage [Recovered/Resolved]
  - Staphylococcal infection [Not Recovered/Not Resolved]
  - Breast cancer [Not Recovered/Not Resolved]
